FAERS Safety Report 13706122 (Version 1)
Quarter: 2017Q2

REPORT INFORMATION
  Report Type: Spontaneous
  Country: AU (occurrence: AU)
  Receive Date: 20170630
  Receipt Date: 20170630
  Transmission Date: 20170830
  Serious: Yes (Other)
  Sender: FDA-Public Use
  Company Number: AU-ASTRAZENECA-2017SE66909

PATIENT
  Sex: Female

DRUGS (2)
  1. ACIMAX [Suspect]
     Active Substance: OMEPRAZOLE
     Route: 048
     Dates: start: 201704
  2. ACIMAX [Suspect]
     Active Substance: OMEPRAZOLE
     Dosage: LOSEC 20 MG DAILY
     Route: 048
     Dates: end: 201704

REACTIONS (1)
  - Gastric haemorrhage [Unknown]

NARRATIVE: CASE EVENT DATE: 20170619
